FAERS Safety Report 6439089-7 (Version None)
Quarter: 2009Q4

REPORT INFORMATION
  Report Type: 
  Country: None (occurrence: None)
  Receive Date: 20091110
  Receipt Date: 20091026
  Transmission Date: 20100525
  Serious: Yes (Hospitalization)
  Sender: FDA-Public Use
  Company Number: 2009AC000234

PATIENT
  Age: 72 Year
  Sex: Female

DRUGS (29)
  1. DIGOXIN [Suspect]
     Dosage: .25 MG;QD;PO
     Route: 048
  2. ASPIRIN [Concomitant]
  3. TOPROL-XL [Concomitant]
  4. XANAX [Concomitant]
  5. ZYRTEC [Concomitant]
  6. FUROSEMIDE [Concomitant]
  7. SPIRONOLACTONE [Concomitant]
  8. PREVACID [Concomitant]
  9. FISH OIL [Concomitant]
  10. CALCIUM [Concomitant]
  11. VITAMIN E [Concomitant]
  12. OMEPRAZOLE [Concomitant]
  13. LEVOTHYROXINE [Concomitant]
  14. TRICOR [Concomitant]
  15. METOPROLOL [Concomitant]
  16. KEFLEX [Concomitant]
  17. SYNTHROID [Concomitant]
  18. DIAZEPAM [Concomitant]
  19. PRAVASTATIN [Concomitant]
  20. FLUCONAZOLE [Concomitant]
  21. CEPHALEXIN [Concomitant]
  22. ADVICOR [Concomitant]
  23. HYDROCORTISONE [Concomitant]
  24. METHPREDNISONE [Concomitant]
  25. AVELOX [Concomitant]
  26. CLINDAMYCIN [Concomitant]
  27. CIIPROFLOXACIN [Concomitant]
  28. SPIRONOLACT [Concomitant]
  29. FEXOFENADINE [Concomitant]

REACTIONS (18)
  - ANXIETY [None]
  - CARDIAC FAILURE CONGESTIVE [None]
  - CARDIOMYOPATHY [None]
  - CHEST PAIN [None]
  - DYSPNOEA [None]
  - ECONOMIC PROBLEM [None]
  - FATIGUE [None]
  - FEAR [None]
  - FEMORAL ARTERIAL STENOSIS [None]
  - HYPERLIPIDAEMIA [None]
  - ISCHAEMIA [None]
  - MULTIPLE INJURIES [None]
  - OEDEMA PERIPHERAL [None]
  - ORTHOPNOEA [None]
  - PALPITATIONS [None]
  - SUPRAVENTRICULAR TACHYCARDIA [None]
  - SWELLING [None]
  - VENTRICULAR TACHYCARDIA [None]
